FAERS Safety Report 8374225-7 (Version None)
Quarter: 2012Q2

REPORT INFORMATION
  Report Type: 
  Country: None (occurrence: None)
  Receive Date: 20120521
  Receipt Date: 20120517
  Transmission Date: 20120825
  Serious: Yes (Hospitalization, Other)
  Sender: FDA-Public Use
  Company Number: US-MERCK-1101USA03582

PATIENT
  Age: 64 Year
  Sex: Female
  Weight: 71 kg

DRUGS (4)
  1. FOSAMAX [Suspect]
     Indication: OSTEOPOROSIS
     Route: 048
     Dates: start: 20010501, end: 20100701
  2. VITAMINS (UNSPECIFIED) [Concomitant]
     Route: 065
     Dates: start: 19860101
  3. PREDNISONE TAB [Suspect]
     Indication: SYSTEMIC LUPUS ERYTHEMATOSUS
     Route: 065
     Dates: start: 19840101
  4. CALCIUM CARBONATE [Concomitant]
     Route: 065
     Dates: start: 20010101

REACTIONS (27)
  - BLOOD GLUCOSE INCREASED [None]
  - POLYP [None]
  - RENAL CYST [None]
  - TOOTHACHE [None]
  - HAEMATURIA [None]
  - BLOOD DISORDER [None]
  - RECTAL HAEMORRHAGE [None]
  - UTERINE DISORDER [None]
  - SUPRAVENTRICULAR TACHYCARDIA [None]
  - IDIOPATHIC THROMBOCYTOPENIC PURPURA [None]
  - HAEMORRHAGE URINARY TRACT [None]
  - MITRAL VALVE INCOMPETENCE [None]
  - STRESS URINARY INCONTINENCE [None]
  - DIVERTICULUM [None]
  - OMPHALITIS [None]
  - HAEMOGLOBIN DECREASED [None]
  - ARTHROPATHY [None]
  - PLATELET COUNT INCREASED [None]
  - RADICULITIS LUMBOSACRAL [None]
  - VULVOVAGINAL BURNING SENSATION [None]
  - DYSPNOEA EXERTIONAL [None]
  - FEMUR FRACTURE [None]
  - PARAESTHESIA [None]
  - CONNECTIVE TISSUE DISORDER [None]
  - CYSTITIS [None]
  - DIABETES MELLITUS [None]
  - FALL [None]
